FAERS Safety Report 21998271 (Version 1)
Quarter: 2023Q1

REPORT INFORMATION
  Report Type: Spontaneous
  Country: US (occurrence: US)
  Receive Date: 20230216
  Receipt Date: 20230216
  Transmission Date: 20230418
  Serious: No
  Sender: FDA-Public Use
  Company Number: US-JNJFOC-20230211818

PATIENT
  Sex: Female

DRUGS (2)
  1. IMODIUM MULTI-SYMPTOM RELIEF [Suspect]
     Active Substance: DIMETHICONE\LOPERAMIDE HYDROCHLORIDE
     Indication: Product used for unknown indication
     Dosage: DOSE: 1 CAPLET 5 TIMES A WEEK.
     Route: 065
     Dates: start: 20230202
  2. IMODIUM MULTI-SYMPTOM RELIEF [Suspect]
     Active Substance: DIMETHICONE\LOPERAMIDE HYDROCHLORIDE
     Route: 065
     Dates: start: 2020

REACTIONS (4)
  - Incorrect dose administered [Unknown]
  - Incorrect product administration duration [Unknown]
  - Product packaging difficult to open [Unknown]
  - Product package associated injury [Unknown]

NARRATIVE: CASE EVENT DATE: 20200101
